FAERS Safety Report 18181234 (Version 2)
Quarter: 2022Q1

REPORT INFORMATION
  Report Type: Report from Study
  Country: FR (occurrence: None)
  Receive Date: 20200821
  Receipt Date: 20220112
  Transmission Date: 20220423
  Serious: Yes (Other)
  Sender: FDA-Public Use
  Company Number: 2020SF03840

PATIENT
  Age: 65 Year
  Sex: Male

DRUGS (7)
  1. QUETIAPINE [Suspect]
     Active Substance: QUETIAPINE
     Indication: Psychotic disorder
     Route: 048
  2. QUETIAPINE [Suspect]
     Active Substance: QUETIAPINE
     Indication: Behaviour disorder
     Route: 048
  3. CYAMEMAZINE [Suspect]
     Active Substance: CYAMEMAZINE
     Indication: Psychotic disorder
     Route: 065
  4. CYAMEMAZINE [Suspect]
     Active Substance: CYAMEMAZINE
     Indication: Behaviour disorder
     Route: 065
  5. CABERGOLINE [Concomitant]
     Active Substance: CABERGOLINE
     Route: 065
     Dates: start: 201705, end: 201711
  6. CABERGOLINE [Concomitant]
     Active Substance: CABERGOLINE
     Route: 065
     Dates: start: 201711, end: 201803
  7. CABERGOLINE [Concomitant]
     Active Substance: CABERGOLINE
     Route: 065
     Dates: start: 201803

REACTIONS (2)
  - Prolactin-producing pituitary tumour [Recovering/Resolving]
  - Off label use [Unknown]
